FAERS Safety Report 21071996 (Version 1)
Quarter: 2022Q3

REPORT INFORMATION
  Report Type: Spontaneous
  Country: US (occurrence: None)
  Receive Date: 20220712
  Receipt Date: 20220712
  Transmission Date: 20221026
  Serious: Yes (Hospitalization)
  Sender: FDA-Public Use
  Company Number: None

PATIENT
  Age: 47 Year
  Sex: Male

DRUGS (1)
  1. CAPECITABINE [Suspect]
     Active Substance: CAPECITABINE
     Dosage: OTHER QUANTITY : 2500MG AM 2000MG P;?FREQUENCY : DAILY;?
     Route: 048
     Dates: start: 202204

REACTIONS (4)
  - Skin exfoliation [None]
  - Dysphonia [None]
  - Dehydration [None]
  - Treatment delayed [None]

NARRATIVE: CASE EVENT DATE: 20220623
